FAERS Safety Report 5949632-X (Version None)
Quarter: 2008Q4

REPORT INFORMATION
  Report Type: 
  Country: None (occurrence: None)
  Receive Date: 20081021
  Receipt Date: 20080428
  Transmission Date: 20090506
  Serious: Yes (Other)
  Sender: FDA-Public Use
  Company Number: HQWYE404218MAY06

PATIENT
  Age: 56 Year
  Sex: Female
  Weight: 90.8 kg

DRUGS (3)
  1. PREMARIN [Suspect]
  2. ESTRADERM [Suspect]
  3. PROVERA [Suspect]

REACTIONS (1)
  - BREAST CANCER [None]
